FAERS Safety Report 9139676 (Version 1)
Quarter: 2013Q1

REPORT INFORMATION
  Report Type: Spontaneous
  Country: US (occurrence: US)
  Receive Date: 20130305
  Receipt Date: 20130305
  Transmission Date: 20140127
  Serious: No
  Sender: FDA-Public Use
  Company Number: US-ENDO PHARMACEUTICALS INC.-SPLN20120045

PATIENT
  Sex: Female
  Weight: 35.41 kg

DRUGS (2)
  1. SUPPRELIN LA [Suspect]
     Indication: PRECOCIOUS PUBERTY
     Route: 058
     Dates: start: 201108
  2. SUPPRELIN LA [Suspect]

REACTIONS (3)
  - Growth accelerated [Unknown]
  - Abnormal behaviour [Unknown]
  - Weight increased [Unknown]
